FAERS Safety Report 4727619-2 (Version None)
Quarter: 2005Q3

REPORT INFORMATION
  Report Type: 
  Country: None (occurrence: None)
  Receive Date: 20050728
  Receipt Date: 20041028
  Transmission Date: 20060218
  Serious: Yes (Death, Hospitalization)
  Sender: FDA-Public Use
  Company Number: ES-SANOFI-SYNTHELABO-F01200403381

PATIENT
  Sex: Male

DRUGS (7)
  1. OXALIPLATIN [Suspect]
     Indication: COLORECTAL CANCER METASTATIC
     Route: 042
     Dates: start: 20040920, end: 20040920
  2. FLUOROURACIL [Suspect]
     Route: 042
     Dates: start: 20040920, end: 20040920
  3. LEUCOVORIN [Suspect]
     Route: 042
     Dates: start: 20040920, end: 20040920
  4. BEVACIZUMAB OR PLACEBO [Suspect]
     Route: 042
     Dates: start: 20040920, end: 20040920
  5. OMEPRAZOLE [Concomitant]
     Dosage: UNK
     Route: 065
     Dates: start: 20040729, end: 20040928
  6. VOLTAREN [Concomitant]
     Dosage: UNK
     Route: 065
     Dates: start: 20040729, end: 20040927
  7. BOREA [Concomitant]
     Route: 065
     Dates: start: 20040823, end: 20040928

REACTIONS (10)
  - ANAEMIA [None]
  - COAGULOPATHY [None]
  - ESCHERICHIA BACTERAEMIA [None]
  - LIVER ABSCESS [None]
  - MULTI-ORGAN FAILURE [None]
  - NEUROLOGICAL SYMPTOM [None]
  - NEUTROPENIA [None]
  - RED BLOOD CELL SCHISTOCYTES PRESENT [None]
  - RENAL FAILURE [None]
  - THROMBOTIC THROMBOCYTOPENIC PURPURA [None]
